FAERS Safety Report 12369544 (Version 1)
Quarter: 2016Q2

REPORT INFORMATION
  Report Type: Spontaneous
  Country: US (occurrence: None)
  Receive Date: 20160513
  Receipt Date: 20160513
  Transmission Date: 20160815
  Serious: Yes (Life-Threatening, Other)
  Sender: FDA-Public Use
  Company Number: None

PATIENT
  Age: 3 Year
  Sex: Male
  Weight: 15.42 kg

DRUGS (5)
  1. SUPRAX [Suspect]
     Active Substance: CEFIXIME
     Indication: SINUSITIS
     Dosage: 0.5 TABLET (S) IN THE MORNING TAKEN BY MOUTH
     Route: 048
     Dates: start: 20160426, end: 20160502
  2. PROBIOTIC [Concomitant]
     Active Substance: PROBIOTICS NOS
  3. VANCOMYCIN [Concomitant]
     Active Substance: VANCOMYCIN
  4. FLAGYL [Concomitant]
     Active Substance: METRONIDAZOLE\METRONIDAZOLE HYDROCHLORIDE
  5. ALBUTEROL NEB [Concomitant]

REACTIONS (2)
  - Clostridium difficile colitis [None]
  - Diarrhoea haemorrhagic [None]

NARRATIVE: CASE EVENT DATE: 20160502
